FAERS Safety Report 10743862 (Version 1)
Quarter: 2015Q1

REPORT INFORMATION
  Report Type: Spontaneous
  Country: US (occurrence: None)
  Receive Date: 20150123
  Receipt Date: 20150123
  Transmission Date: 20150721
  Serious: Yes (Other)
  Sender: FDA-Public Use
  Company Number: None

PATIENT
  Sex: Female
  Weight: 58.97 kg

DRUGS (1)
  1. ZUBSOLV [Suspect]
     Active Substance: BUPRENORPHINE HYDROCHLORIDE\NALOXONE HYDROCHLORIDE
     Dosage: 3 PILLS
     Route: 048

REACTIONS (6)
  - Product substitution issue [None]
  - Drug ineffective [None]
  - Withdrawal syndrome [None]
  - Nightmare [None]
  - Crying [None]
  - Dependence [None]
